FAERS Safety Report 10152399 (Version 1)
Quarter: 2014Q2

REPORT INFORMATION
  Report Type: Spontaneous
  Country: US (occurrence: US)
  Receive Date: 20140505
  Receipt Date: 20140505
  Transmission Date: 20141212
  Serious: Yes (Hospitalization)
  Sender: FDA-Public Use
  Company Number: US-MALLINCKRODT-T201401958

PATIENT
  Age: 76 Year
  Sex: Female

DRUGS (1)
  1. GABLOFEN [Suspect]
     Indication: MUSCLE SPASTICITY
     Dosage: 81 MCG/DAY
     Route: 037

REACTIONS (4)
  - Wrong technique in drug usage process [Unknown]
  - Overdose [Unknown]
  - Hallucination [Unknown]
  - Implant site extravasation [Unknown]
